FAERS Safety Report 10432104 (Version 2)
Quarter: 2014Q4

REPORT INFORMATION
  Report Type: Spontaneous
  Country: US (occurrence: US)
  Receive Date: 20140905
  Receipt Date: 20141029
  Transmission Date: 20150528
  Serious: No
  Sender: FDA-Public Use
  Company Number: US-SHIRE-US201405523

PATIENT
  Age: 55 Year
  Sex: Male
  Weight: 77.98 kg

DRUGS (1)
  1. VYVANSE [Suspect]
     Active Substance: LISDEXAMFETAMINE DIMESYLATE
     Indication: ATTENTION DEFICIT/HYPERACTIVITY DISORDER
     Dosage: 60 MG, 1X/DAY:QD
     Route: 048
     Dates: start: 201404

REACTIONS (2)
  - Drug ineffective [Not Recovered/Not Resolved]
  - Product quality issue [Unknown]

NARRATIVE: CASE EVENT DATE: 2014
